FAERS Safety Report 7216561-3 (Version None)
Quarter: 2011Q1

REPORT INFORMATION
  Report Type: 
  Country: None (occurrence: None)
  Receive Date: 20110110
  Receipt Date: 20101228
  Transmission Date: 20110831
  Serious: Yes (Hospitalization)
  Sender: FDA-Public Use
  Company Number: US-BIOGENIDEC-2010BI017460

PATIENT
  Age: 27 Year
  Sex: Male

DRUGS (1)
  1. TYSABRI [Suspect]
     Indication: MULTIPLE SCLEROSIS
     Route: 042
     Dates: start: 20100114

REACTIONS (6)
  - FATIGUE [None]
  - INITIAL INSOMNIA [None]
  - DEPRESSION [None]
  - DISTURBANCE IN ATTENTION [None]
  - MUSCULAR WEAKNESS [None]
  - AFFECT LABILITY [None]
